FAERS Safety Report 16918969 (Version 1)
Quarter: 2019Q4

REPORT INFORMATION
  Report Type: Spontaneous
  Country: US (occurrence: US)
  Receive Date: 20191015
  Receipt Date: 20191015
  Transmission Date: 20200122
  Serious: No
  Sender: FDA-Public Use
  Company Number: US-PFIZER INC-2019439584

PATIENT
  Age: 57 Year
  Sex: Female
  Weight: 112.94 kg

DRUGS (7)
  1. LANTUS [Concomitant]
     Active Substance: INSULIN GLARGINE
     Indication: TYPE 2 DIABETES MELLITUS
     Dosage: UNK, 1X/DAY [EVERY NIGHT]
  2. RAPAMUNE [Suspect]
     Active Substance: SIROLIMUS
     Dosage: 2 TABLETS, UNK
  3. RAPAMUNE [Suspect]
     Active Substance: SIROLIMUS
     Indication: LYMPHANGIOLEIOMYOMATOSIS
     Dosage: 1 MG, DAILY (EVERY MORNING BETWEEN 8 AND 9)
     Dates: start: 2015
  4. RAPAMUNE [Suspect]
     Active Substance: SIROLIMUS
     Dosage: 1.5 TABLETS, UNK
  5. METFORMIN [Concomitant]
     Active Substance: METFORMIN HYDROCHLORIDE
     Indication: TYPE 2 DIABETES MELLITUS
     Dosage: UNK, 2X/DAY
  6. TRULICITY [Concomitant]
     Active Substance: DULAGLUTIDE
     Indication: TYPE 2 DIABETES MELLITUS
     Dosage: UNK, WEEKLY [SATURDAY AT NIGHT]
  7. RAPAMUNE [Suspect]
     Active Substance: SIROLIMUS
     Dosage: 1 DF, UNK

REACTIONS (2)
  - Weight decreased [Unknown]
  - Glycosylated haemoglobin increased [Recovering/Resolving]

NARRATIVE: CASE EVENT DATE: 2016
